FAERS Safety Report 23869541 (Version 2)
Quarter: 2024Q3

REPORT INFORMATION
  Report Type: Spontaneous
  Country: US (occurrence: US)
  Receive Date: 20240517
  Receipt Date: 20240722
  Transmission Date: 20241017
  Serious: Yes (Hospitalization, Other)
  Sender: SANOFI AVENTIS
  Company Number: US-SA-SAC20240513001392

PATIENT
  Age: 59 Year
  Sex: Male

DRUGS (1)
  1. REZUROCK [Suspect]
     Active Substance: BELUMOSUDIL
     Indication: Graft versus host disease
     Dosage: 200 MG, QD
     Route: 048
     Dates: start: 20220823

REACTIONS (8)
  - Femur fracture [Unknown]
  - Pain [Unknown]
  - Fall [Unknown]
  - Hip fracture [Unknown]
  - Depressed mood [Unknown]
  - General physical health deterioration [Unknown]
  - Emotional disorder [Unknown]
  - Asthenia [Unknown]
